FAERS Safety Report 14069861 (Version 2)
Quarter: 2018Q1

REPORT INFORMATION
  Report Type: Report from Study
  Country: CA (occurrence: CA)
  Receive Date: 20171010
  Receipt Date: 20180305
  Transmission Date: 20180508
  Serious: Yes (Other)
  Sender: FDA-Public Use
  Company Number: PHHY2017CA145457

PATIENT
  Sex: Male

DRUGS (1)
  1. JADENU [Suspect]
     Active Substance: DEFERASIROX
     Indication: SICKLE CELL ANAEMIA
     Dosage: 360 MG, QD
     Route: 048
     Dates: start: 20170303

REACTIONS (4)
  - Influenza like illness [Unknown]
  - Pneumonia [Unknown]
  - Weight decreased [Unknown]
  - Stress [Unknown]
